FAERS Safety Report 10428699 (Version 2)
Quarter: 2015Q1

REPORT INFORMATION
  Report Type: Report from Study
  Country: US (occurrence: US)
  Receive Date: 20140903
  Receipt Date: 20150330
  Transmission Date: 20150720
  Serious: Yes (Death, Other)
  Sender: FDA-Public Use
  Company Number: US-GILEAD-2014-0113838

PATIENT
  Age: 76 Year
  Sex: Male

DRUGS (12)
  1. FERROUS SULFATE [Concomitant]
     Active Substance: FERROUS SULFATE\FERROUS SULFATE, DRIED
  2. AMBRISENTAN [Suspect]
     Active Substance: AMBRISENTAN
     Indication: PULMONARY HYPERTENSION
     Dosage: 5 MG, QD
     Route: 065
     Dates: start: 20130415, end: 20140826
  3. MAGNESIUM [Concomitant]
     Active Substance: MAGNESIUM
  4. DILTIAZEM [Concomitant]
     Active Substance: DILTIAZEM
  5. AMBRISENTAN [Suspect]
     Active Substance: AMBRISENTAN
     Indication: INFLAMMATION
  6. SIMVASTATIN. [Concomitant]
     Active Substance: SIMVASTATIN
  7. NOVOLOG [Concomitant]
     Active Substance: INSULIN ASPART
  8. GLIMEPIRIDE. [Concomitant]
     Active Substance: GLIMEPIRIDE
  9. ASPIRIN                            /00002701/ [Concomitant]
     Active Substance: ASPIRIN
  10. TYVASO [Concomitant]
     Active Substance: TREPROSTINIL
  11. METFORMIN [Concomitant]
     Active Substance: METFORMIN HYDROCHLORIDE
  12. LASIX [Concomitant]
     Active Substance: FUROSEMIDE

REACTIONS (3)
  - Pulmonary hypertension [Fatal]
  - Pulmonary fibrosis [Fatal]
  - Cardiac arrest [Fatal]

NARRATIVE: CASE EVENT DATE: 20140826
